FAERS Safety Report 23950659 (Version 1)
Quarter: 2024Q2

REPORT INFORMATION
  Report Type: Report from Study
  Country: DE (occurrence: DE)
  Receive Date: 20240607
  Receipt Date: 20240607
  Transmission Date: 20240715
  Serious: No
  Sender: FDA-Public Use
  Company Number: DE-SPRINGWORKS THERAPEUTICS-SW-001512

PATIENT
  Age: 38 Year
  Sex: Female

DRUGS (2)
  1. NIROGACESTAT [Suspect]
     Active Substance: NIROGACESTAT
     Indication: Product used for unknown indication
     Dosage: 140 MILLIGRAM, BID
  2. NIROGACESTAT [Suspect]
     Active Substance: NIROGACESTAT
     Dosage: 120 MILLIGRAM, BID

REACTIONS (1)
  - Gastrointestinal disorder [Unknown]
